FAERS Safety Report 6025268-X (Version None)
Quarter: 2008Q4

REPORT INFORMATION
  Report Type: 
  Country: None (occurrence: None)
  Receive Date: 20081231
  Receipt Date: 20081218
  Transmission Date: 20090506
  Serious: Yes (Other)
  Sender: FDA-Public Use
  Company Number: PHHY2008US29514

PATIENT
  Sex: Male
  Weight: 80 kg

DRUGS (2)
  1. EXJADE [Suspect]
     Indication: IRON OVERLOAD
     Dosage: 1500 MG DAILY
     Route: 048
     Dates: start: 20080120, end: 20080509
  2. ARANESP [Concomitant]
     Indication: ANAEMIA
     Dosage: 200 UG Q 3 WEEKS
     Route: 058

REACTIONS (3)
  - BLOOD CREATININE INCREASED [None]
  - DECREASED APPETITE [None]
  - RENAL FAILURE [None]
